FAERS Safety Report 6004270-8 (Version None)
Quarter: 2008Q4

REPORT INFORMATION
  Report Type: 
  Country: None (occurrence: None)
  Receive Date: 20081216
  Receipt Date: 20081212
  Transmission Date: 20090506
  Serious: Yes (Other)
  Sender: FDA-Public Use
  Company Number: US-ASTRAZENECA-2008UW21743

PATIENT
  Age: 40 Year
  Sex: Female
  Weight: 74.8 kg

DRUGS (2)
  1. CRESTOR [Suspect]
     Route: 048
     Dates: start: 20080922
  2. CRESTOR [Suspect]
     Route: 048

REACTIONS (2)
  - EYE IRRITATION [None]
  - VISION BLURRED [None]
